FAERS Safety Report 13839495 (Version 1)
Quarter: 2017Q3

REPORT INFORMATION
  Report Type: Spontaneous
  Country: US (occurrence: US)
  Receive Date: 20170805
  Receipt Date: 20170805
  Transmission Date: 20171127
  Serious: No
  Sender: FDA-Public Use
  Company Number: None

PATIENT
  Age: 40 Year
  Sex: Female

DRUGS (7)
  1. KETOCONAZOLE. [Concomitant]
     Active Substance: KETOCONAZOLE
  2. TRIAMCINOLONE CREAM [Concomitant]
     Active Substance: TRIAMCINOLONE
  3. CLOBETASOL [Concomitant]
     Active Substance: CLOBETASOL
  4. ETONOGESTROL [Concomitant]
  5. MULTIHANCE [Suspect]
     Active Substance: GADOBENATE DIMEGLUMINE
     Indication: NUCLEAR MAGNETIC RESONANCE IMAGING
     Route: 042
     Dates: start: 20161219, end: 20161219
  6. CARBAMAZEPINE. [Concomitant]
     Active Substance: CARBAMAZEPINE
  7. TRAMADOL. [Concomitant]
     Active Substance: TRAMADOL

REACTIONS (5)
  - Headache [None]
  - Throat irritation [None]
  - Dry throat [None]
  - Facial pain [None]
  - Cough [None]

NARRATIVE: CASE EVENT DATE: 20161219
